FAERS Safety Report 7751445 (Version 3)
Quarter: 2013Q4

REPORT INFORMATION
  Report Type: Spontaneous
  Country: US (occurrence: US)
  Receive Date: 20110107
  Receipt Date: 20131213
  Transmission Date: 20140711
  Serious: Yes (Hospitalization, Other)
  Sender: FDA-Public Use
  Company Number: US-BAYER-2010-009231

PATIENT
  Age: 34 Year
  Sex: Female
  Weight: 119.73 kg

DRUGS (5)
  1. YASMIN [Suspect]
  2. YAZ [Suspect]
  3. OCELLA [Suspect]
  4. MOTRIN [Concomitant]
     Dosage: UNK
     Dates: start: 20090120
  5. PERCOCET [Concomitant]

REACTIONS (3)
  - Cholecystitis chronic [None]
  - Gallbladder disorder [None]
  - Pain [None]
